FAERS Safety Report 8070863 (Version 4)
Quarter: 2012Q4

REPORT INFORMATION
  Report Type: 
  Country: JP (occurrence: JP)
  Receive Date: 20110805
  Receipt Date: 20121228
  Transmission Date: 20130627
  Serious: Yes (Hospitalization)
  Sender: FDA-Public Use
  Company Number: JP-NOVOPROD-332694

PATIENT
  Age: 75 Year
  Sex: Female
  Weight: 41 kg

DRUGS (5)
  1. VICTOZA HIKACHU INJECTION [Suspect]
     Indication: TYPE 2 DIABETES MELLITUS
     Dosage: 0.3 mg, qd
     Route: 058
     Dates: start: 20100803
  2. VICTOZA HIKACHU INJECTION [Suspect]
     Dosage: 0.6 mg, qd
     Route: 058
     Dates: start: 20100824, end: 20110602
  3. GLIMICRON [Concomitant]
     Indication: PROPHYLAXIS
     Dosage: 20 mg, qd
     Route: 048
     Dates: start: 20100715
  4. GLIMICRON [Concomitant]
     Dosage: 20 mg, qd
     Route: 048
     Dates: start: 20101214
  5. PLETAAL [Concomitant]
     Dosage: 100 mg, qd
     Route: 048
     Dates: start: 20100727

REACTIONS (1)
  - Pancreatitis [Recovered/Resolved]
